FAERS Safety Report 6105376-5 (Version None)
Quarter: 2009Q1

REPORT INFORMATION
  Report Type: 
  Country: None (occurrence: None)
  Receive Date: 20090306
  Receipt Date: 20090223
  Transmission Date: 20090719
  Serious: Yes (Hospitalization)
  Sender: FDA-Public Use
  Company Number: JP-PFIZER INC-2008090914

PATIENT

DRUGS (2)
  1. RIFABUTIN [Suspect]
     Indication: MYCOBACTERIUM AVIUM COMPLEX INFECTION
     Dosage: 300 MG, 1X/DAY
     Route: 048
     Dates: start: 20081011, end: 20081015
  2. CLARITH [Concomitant]
     Dosage: UNK
     Route: 048
     Dates: start: 20080918

REACTIONS (3)
  - DECREASED APPETITE [None]
  - HEPATIC FUNCTION ABNORMAL [None]
  - PYREXIA [None]
